FAERS Safety Report 5116966-0 (Version None)
Quarter: 2006Q3

REPORT INFORMATION
  Report Type: 
  Country: None (occurrence: None)
  Receive Date: 20060922
  Receipt Date: 20060919
  Transmission Date: 20061208
  Serious: Yes (Life-Threatening)
  Sender: FDA-Public Use
  Company Number: 2006-143416-NL

PATIENT
  Age: 88 Year
  Sex: Female

DRUGS (5)
  1. DANAPAROID SODIUM [Suspect]
     Indication: DISSEMINATED INTRAVASCULAR COAGULATION
     Dosage: INTRAVENOUS DRIP
     Route: 041
     Dates: start: 20060213, end: 20060217
  2. ANTITHROMBIN III [Concomitant]
  3. DOPAMINE HCL [Concomitant]
  4. OMEPRAZOLE SODIUM [Concomitant]
  5. FUROSEMIDE [Concomitant]

REACTIONS (3)
  - CONDITION AGGRAVATED [None]
  - DISSEMINATED INTRAVASCULAR COAGULATION [None]
  - HYPOKALAEMIA [None]
